FAERS Safety Report 6308509-0 (Version None)
Quarter: 2009Q3

REPORT INFORMATION
  Report Type: 
  Country: None (occurrence: None)
  Receive Date: 20090811
  Receipt Date: 20090729
  Transmission Date: 20100115
  Serious: Yes (Death)
  Sender: FDA-Public Use
  Company Number: 2009SP017082

PATIENT
  Age: 86 Year
  Sex: Female

DRUGS (2)
  1. ORGARAN [Suspect]
     Indication: PULMONARY EMBOLISM
  2. LOVENOX [Concomitant]

REACTIONS (2)
  - DRUG INEFFECTIVE [None]
  - GENERAL PHYSICAL HEALTH DETERIORATION [None]
